FAERS Safety Report 5825477-6 (Version None)
Quarter: 2008Q3

REPORT INFORMATION
  Report Type: 
  Country: None (occurrence: None)
  Receive Date: 20080725
  Receipt Date: 20080725
  Transmission Date: 20090109
  Serious: Yes (Hospitalization)
  Sender: FDA-Public Use
  Company Number: None

PATIENT
  Age: 79 Year
  Sex: Female
  Weight: 97 kg

DRUGS (1)
  1. PRAVACHOL [Suspect]

REACTIONS (2)
  - ASTHENIA [None]
  - MUSCLE SPASMS [None]
